FAERS Safety Report 12471379 (Version 10)
Quarter: 2019Q4

REPORT INFORMATION
  Report Type: Report from Study
  Country: FR (occurrence: FR)
  Receive Date: 20160616
  Receipt Date: 20191018
  Transmission Date: 20200122
  Serious: Yes (Hospitalization, Other)
  Sender: FDA-Public Use
  Company Number: FR-AMGEN-FRACT2016077306

PATIENT
  Age: 71 Year
  Sex: Male
  Weight: 87.98 kg

DRUGS (8)
  1. TRAMETINIB [Suspect]
     Active Substance: TRAMETINIB
     Indication: COLORECTAL CANCER
     Dosage: 2 MILLIGRAM, QD
     Route: 048
     Dates: start: 20150305, end: 20150323
  2. CETUXIMAB. [Concomitant]
     Active Substance: CETUXIMAB
     Dosage: UNK
     Route: 065
     Dates: end: 20150203
  3. IRINOTECAN [Concomitant]
     Active Substance: IRINOTECAN
     Indication: CHEMOTHERAPY
     Dosage: UNK
     Route: 065
     Dates: start: 2014
  4. CETUXIMAB. [Concomitant]
     Active Substance: CETUXIMAB
     Indication: CHEMOTHERAPY
     Dosage: UNK
     Route: 065
     Dates: start: 2014
  5. CETUXIMAB. [Concomitant]
     Active Substance: CETUXIMAB
     Dosage: UNK
     Route: 065
     Dates: start: 20150707
  6. AMLOR [Concomitant]
     Active Substance: AMLODIPINE BESYLATE
     Indication: HYPERTENSION
     Dosage: 10 MILLIGRAM, QD
     Route: 048
     Dates: start: 20150323, end: 201505
  7. PANITUMUMAB [Suspect]
     Active Substance: PANITUMUMAB
     Indication: COLORECTAL CANCER
     Dosage: UNK UNK, CYCLICAL
     Route: 042
     Dates: start: 20150305, end: 20150319
  8. IRINOTECAN [Concomitant]
     Active Substance: IRINOTECAN
     Dosage: UNK
     Route: 065
     Dates: start: 20150707

REACTIONS (3)
  - Candida infection [Recovered/Resolved]
  - Venoocclusive liver disease [Recovered/Resolved]
  - Urinoma [Recovered/Resolved]

NARRATIVE: CASE EVENT DATE: 20150323
